FAERS Safety Report 8763215 (Version 1)
Quarter: 2012Q4

REPORT INFORMATION
  Report Type: 
  Country: US (occurrence: US)
  Receive Date: 20120831
  Receipt Date: 20120831
  Transmission Date: 20130627
  Serious: Yes (Hospitalization)
  Sender: FDA-Public Use
  Company Number: US-BAYER-2012-087973

PATIENT
  Age: 41 Year
  Sex: Female

DRUGS (3)
  1. YAZ [Suspect]
  2. LYRICA [Concomitant]
     Dosage: 100 mg, UNK
  3. MULTIVITAMINS [Concomitant]

REACTIONS (2)
  - Pulmonary embolism [None]
  - Pelvic venous thrombosis [None]
